FAERS Safety Report 12466531 (Version 2)
Quarter: 2016Q3

REPORT INFORMATION
  Report Type: Spontaneous
  Country: NL (occurrence: NL)
  Receive Date: 20160615
  Receipt Date: 20160909
  Transmission Date: 20161109
  Serious: Yes (Hospitalization, Other)
  Sender: FDA-Public Use
  Company Number: NL-ASTRAZENECA-2014SE83529

PATIENT
  Age: 30944 Day
  Sex: Male

DRUGS (4)
  1. ZYTIGA [Concomitant]
     Active Substance: ABIRATERONE ACETATE
  2. MORFINE PLASTERS [Concomitant]
     Dosage: 4 GRAMME AND12.5 MG
  3. ZOLADEX [Suspect]
     Active Substance: GOSERELIN ACETATE
     Indication: PROSTATE CANCER
     Dosage: 10.8MG UNKNOWN
     Route: 058
     Dates: start: 20130904
  4. SINTROM [Concomitant]
     Active Substance: ACENOCOUMAROL

REACTIONS (10)
  - Cancer pain [Unknown]
  - Atrial fibrillation [Unknown]
  - Abdominal discomfort [Unknown]
  - Hypersomnia [Unknown]
  - Decreased appetite [Unknown]
  - Insomnia [Unknown]
  - Metastases to pelvis [Unknown]
  - Malignant neoplasm progression [Recovering/Resolving]
  - Asthenia [Unknown]
  - Pallor [Unknown]

NARRATIVE: CASE EVENT DATE: 20151127
